FAERS Safety Report 7727114-2 (Version None)
Quarter: 2011Q3

REPORT INFORMATION
  Report Type: 
  Country: None (occurrence: None)
  Receive Date: 20110831
  Receipt Date: 20080718
  Transmission Date: 20111222
  Serious: Yes (Other)
  Sender: FDA-Public Use
  Company Number: 2008PV000057

PATIENT
  Age: 42 Year
  Sex: Male

DRUGS (3)
  1. ANTIEMETICS [Concomitant]
  2. ANTINAUSEANTS [Concomitant]
  3. DEPOCYT [Suspect]
     Indication: METASTASES TO MENINGES

REACTIONS (1)
  - DYSTONIA [None]
